FAERS Safety Report 10990757 (Version 6)
Quarter: 2016Q3

REPORT INFORMATION
  Report Type: Report from Study
  Country: AU (occurrence: AU)
  Receive Date: 20150406
  Receipt Date: 20160810
  Transmission Date: 20161109
  Serious: Yes (Other)
  Sender: FDA-Public Use
  Company Number: AU-SA-2014SA113606

PATIENT
  Age: 67 Year
  Sex: Female

DRUGS (9)
  1. VITAMIN D [Concomitant]
     Active Substance: CHOLECALCIFEROL
  2. GABAPENTIN. [Concomitant]
     Active Substance: GABAPENTIN
  3. IMODIUM [Concomitant]
     Active Substance: LOPERAMIDE HYDROCHLORIDE
  4. AUBAGIO [Suspect]
     Active Substance: TERIFLUNOMIDE
     Indication: MULTIPLE SCLEROSIS
     Route: 048
     Dates: start: 201306
  5. DIAFORMIN [Concomitant]
     Active Substance: METFORMIN HYDROCHLORIDE
  6. AUBAGIO [Suspect]
     Active Substance: TERIFLUNOMIDE
     Indication: MULTIPLE SCLEROSIS
     Route: 048
     Dates: start: 20140620
  7. ATIVAN [Concomitant]
     Active Substance: LORAZEPAM
  8. PANADOL [Concomitant]
     Active Substance: ACETAMINOPHEN
  9. TORADOL [Concomitant]
     Active Substance: KETOROLAC TROMETHAMINE

REACTIONS (23)
  - Fatigue [Not Recovered/Not Resolved]
  - Arthralgia [Recovering/Resolving]
  - Arthralgia [Not Recovered/Not Resolved]
  - Unevaluable event [Not Recovered/Not Resolved]
  - Vertigo [Unknown]
  - Asthenia [Not Recovered/Not Resolved]
  - Speech disorder [Unknown]
  - Weight decreased [Not Recovered/Not Resolved]
  - Drug dose omission [Unknown]
  - Balance disorder [Unknown]
  - Disorientation [Not Recovered/Not Resolved]
  - Mood altered [Unknown]
  - Pain [Not Recovered/Not Resolved]
  - Amnesia [Unknown]
  - Pneumonia [Recovering/Resolving]
  - Feeling abnormal [Unknown]
  - Decreased activity [Unknown]
  - Memory impairment [Not Recovered/Not Resolved]
  - Alopecia [Unknown]
  - Dizziness [Not Recovered/Not Resolved]
  - Cough [Unknown]
  - Gait disturbance [Unknown]
  - Diarrhoea [Not Recovered/Not Resolved]

NARRATIVE: CASE EVENT DATE: 201306
